FAERS Safety Report 5051296-7 (Version None)
Quarter: 2006Q3

REPORT INFORMATION
  Report Type: 
  Country: None (occurrence: None)
  Receive Date: 20060710
  Receipt Date: 20060704
  Transmission Date: 20061208
  Serious: Yes (Life-Threatening, Hospitalization)
  Sender: FDA-Public Use
  Company Number: 2006-144907-NL

PATIENT
  Age: 43 Year
  Sex: Male

DRUGS (2)
  1. DEXAMETHASONE TAB [Suspect]
     Indication: NAUSEA
     Dosage: 8 MG
     Dates: start: 20050501
  2. CISPLATIN [Suspect]
     Indication: NASOPHARYNGEAL CANCER
     Dosage: 100 MG/M2
     Dates: start: 20050501, end: 20050501

REACTIONS (1)
  - DIABETIC HYPERGLYCAEMIC COMA [None]
